FAERS Safety Report 7235334-9 (Version None)
Quarter: 2011Q1

REPORT INFORMATION
  Report Type: 
  Country: None (occurrence: None)
  Receive Date: 20110111
  Receipt Date: 20101228
  Transmission Date: 20110831
  Serious: Yes (Hospitalization)
  Sender: FDA-Public Use
  Company Number: 2010P1003456

PATIENT
  Age: 81 Year
  Sex: Female
  Weight: 58.9676 kg

DRUGS (15)
  1. DIAZYDE [Concomitant]
  2. DETROL LA [Concomitant]
  3. FENTANYL-50 [Suspect]
     Indication: BACK PAIN
     Dosage: 50 MCG/HR;Q 72 HR;TDER ; 50 MCG/HR;Q 72 HR;TDER
     Route: 062
     Dates: start: 20100101
  4. FENTANYL-50 [Suspect]
     Indication: BACK PAIN
     Dosage: 50 MCG/HR;Q 72 HR;TDER ; 50 MCG/HR;Q 72 HR;TDER
     Route: 062
     Dates: start: 20090901, end: 20100601
  5. FUROSEMIDE [Suspect]
     Dosage: 40 MG;QD;PO
     Route: 048
  6. POTASSIUM CHLORIDE 10MEQ [Concomitant]
  7. FENTANYL [Suspect]
     Indication: BACK PAIN
     Dosage: 75 MCG/HR;Q 72 HR;TDER
     Route: 062
     Dates: start: 20100601
  8. AMLODIPINE [Concomitant]
  9. LEXAPRO [Suspect]
     Dosage: PO
     Route: 048
  10. PANTOPRAZOLE [Concomitant]
  11. RE DUALVIT PLUS [Concomitant]
  12. MILK OF MAGNESIA TAB [Concomitant]
  13. EXTRA STRENGTH TYLENOL [Concomitant]
  14. PREV MEDS [Concomitant]
  15. SERTRALINE 50 MG (NO PREF. NAME) [Suspect]
     Dosage: 50 MG;QD

REACTIONS (7)
  - DRUG INEFFECTIVE [None]
  - UNEVALUABLE EVENT [None]
  - BLOOD POTASSIUM DECREASED [None]
  - ATRIAL FIBRILLATION [None]
  - DECREASED INTEREST [None]
  - DEPRESSION [None]
  - CRYING [None]
